FAERS Safety Report 9669875 (Version 1)
Quarter: 2013Q4

REPORT INFORMATION
  Report Type: Report from Study
  Country: DE (occurrence: DE)
  Receive Date: 20131105
  Receipt Date: 20131105
  Transmission Date: 20140711
  Serious: No
  Sender: FDA-Public Use
  Company Number: PHHY2013DE124785

PATIENT
  Sex: Female

DRUGS (5)
  1. AMN107 [Suspect]
     Indication: CHRONIC MYELOID LEUKAEMIA
     Dosage: 600 MG PER DAY
     Route: 048
     Dates: start: 20130719
  2. LISIHEXAL [Concomitant]
  3. TREVILOR [Concomitant]
  4. ZOPICLONE [Concomitant]
  5. ALLOPURINOL [Concomitant]
     Dosage: 300 MG

REACTIONS (1)
  - Fatigue [Unknown]
